FAERS Safety Report 7950728-1 (Version None)
Quarter: 2011Q4

REPORT INFORMATION
  Report Type: 
  Country: None (occurrence: None)
  Receive Date: 20111123
  Receipt Date: 20111109
  Transmission Date: 20120403
  Serious: Yes (Death)
  Sender: FDA-Public Use
  Company Number: UTC-012248

PATIENT
  Age: 51 Year
  Sex: Female
  Weight: 59.55 kg

DRUGS (2)
  1. OXYGEN [Concomitant]
     Indication: PRODUCT USED FOR UNKNOWN INDICATION
  2. REMODULIN [Suspect]
     Indication: PULMONARY HYPERTENSION
     Dosage: 12.96 UG/KG (0.009 UG/KG, 1 IN 1 MIN), INTRAVENOUS
     Route: 042
     Dates: start: 20111013

REACTIONS (1)
  - DEATH [None]
